FAERS Safety Report 6558308-X (Version None)
Quarter: 2010Q1

REPORT INFORMATION
  Report Type: 
  Country: None (occurrence: None)
  Receive Date: 20100129
  Receipt Date: 20100118
  Transmission Date: 20100710
  Serious: Yes (Death, Life-Threatening, Hospitalization)
  Sender: FDA-Public Use
  Company Number: JP-JNJFOC-20090805408

PATIENT
  Age: 65 Year
  Sex: Female
  Weight: 71 kg

DRUGS (30)
  1. DOXIL [Suspect]
     Indication: OVARIAN CANCER RECURRENT
     Dosage: CYCLE 1
     Route: 042
  2. GLUFAST [Concomitant]
     Route: 048
  3. ADJUST-A [Concomitant]
     Route: 048
  4. LASIX [Concomitant]
     Indication: OVARIAN CANCER
     Dosage: 20-40MG/DAY
     Route: 048
  5. MOHRUS TAPE [Concomitant]
     Route: 062
  6. NAUZELIN [Concomitant]
     Indication: OVARIAN CANCER
     Route: 054
  7. TAKEPRON [Concomitant]
     Route: 048
  8. MARZULENE-S [Concomitant]
     Route: 048
  9. PRIMPERAN TAB [Concomitant]
     Indication: OVARIAN CANCER
     Route: 048
  10. KARY UNI [Concomitant]
     Route: 047
  11. AMOBAN [Concomitant]
     Route: 048
  12. LECICARBON [Concomitant]
     Route: 054
  13. DUROTEP [Concomitant]
     Dosage: 12.5UG-25UG-50UG-25UG
     Route: 062
  14. OXINORM [Concomitant]
     Route: 048
  15. HYPEN [Concomitant]
     Route: 048
  16. HIRUDOID CREAM [Concomitant]
     Route: 061
  17. SANCOBA [Concomitant]
     Dosage: 0.02%
     Route: 047
  18. VEEN 3G [Concomitant]
     Route: 042
  19. NEOLAMIN 3B [Concomitant]
     Route: 042
  20. ALBUMIN (HUMAN) [Concomitant]
     Route: 042
  21. ALBUMIN (HUMAN) [Concomitant]
     Dosage: 12..5G/50ML
     Route: 042
  22. PRIMPERAN TAB [Concomitant]
     Route: 042
  23. VEEN D [Concomitant]
     Route: 042
  24. ATARAX [Concomitant]
     Route: 042
  25. ZANTAC [Concomitant]
     Route: 042
  26. MIXED AMINO ACID CARBOHYDRATE ELECTROLYTE VITAMIN COMBINED DRUG [Concomitant]
     Route: 042
  27. PANTOL (PANTHENOL) [Concomitant]
     Route: 042
  28. ISOTONIC SODIUM CHLORIDE [Concomitant]
     Route: 042
  29. ISOTONIC SODIUM CHLORIDE [Concomitant]
     Route: 042
  30. POTACOL-R [Concomitant]
     Route: 042

REACTIONS (9)
  - ASCITES [None]
  - DEVICE RELATED INFECTION [None]
  - OVARIAN CANCER [None]
  - PLEURAL EFFUSION [None]
  - PNEUMONIA [None]
  - PYREXIA [None]
  - RENAL IMPAIRMENT [None]
  - RESPIRATORY FAILURE [None]
  - URINARY TRACT INFECTION [None]
